FAERS Safety Report 26032267 (Version 2)
Quarter: 2025Q4

REPORT INFORMATION
  Report Type: Spontaneous
  Country: EU (occurrence: EU)
  Receive Date: 20251112
  Receipt Date: 20251219
  Transmission Date: 20260118
  Serious: Yes (Other)
  Sender: ROCHE
  Company Number: EU-ROCHE-10000216717

PATIENT
  Age: 27 Year
  Sex: Female

DRUGS (1)
  1. OCREVUS [Suspect]
     Active Substance: OCRELIZUMAB
     Indication: Relapsing-remitting multiple sclerosis
     Dosage: 300MG X 2?INFUSION GIVEN ON 12/AUG/2024
     Route: 042

REACTIONS (7)
  - Maternal exposure before pregnancy [Unknown]
  - Maternal exposure during pregnancy [Unknown]
  - Premature separation of placenta [Unknown]
  - Retroplacental haematoma [Unknown]
  - Foetal death [Unknown]
  - Antiphospholipid syndrome [Unknown]
  - Hypercoagulation [Unknown]
